FAERS Safety Report 5586854-4 (Version None)
Quarter: 2008Q1

REPORT INFORMATION
  Report Type: 
  Country: None (occurrence: None)
  Receive Date: 20080110
  Receipt Date: 20070314
  Transmission Date: 20080703
  Serious: No
  Sender: FDA-Public Use
  Company Number: US-BRISTOL-MYERS SQUIBB COMPANY-13641428

PATIENT
  Sex: Female
  Weight: 52 kg

DRUGS (9)
  1. ERBITUX [Suspect]
     Indication: NON-SMALL CELL LUNG CANCER
     Route: 042
     Dates: start: 20061114, end: 20061212
  2. CISPLATIN [Suspect]
     Indication: NON-SMALL CELL LUNG CANCER
     Route: 042
     Dates: start: 20061114
  3. EFFEXOR XR [Concomitant]
  4. DARVOCET [Concomitant]
     Dosage: 1/2 TO 1 TABLET PRN (USUALLY 1/2 TABLET AT BEDTIME FOR MANY YEARS)
  5. IBUPROFEN [Concomitant]
  6. DUONEB [Concomitant]
     Dosage: 3-4 TIMES DAILY
  7. NEULASTA [Concomitant]
  8. MAGNESIUM SULFATE [Concomitant]
  9. BENADRYL [Concomitant]

REACTIONS (8)
  - ASTHENIA [None]
  - CONSTIPATION [None]
  - DYSPNOEA [None]
  - EAR PAIN [None]
  - RASH PUSTULAR [None]
  - SKIN EXFOLIATION [None]
  - STOMATITIS [None]
  - WEIGHT DECREASED [None]
